FAERS Safety Report 25466329 (Version 1)
Quarter: 2025Q2

REPORT INFORMATION
  Report Type: Spontaneous
  Country: US (occurrence: US)
  Receive Date: 20250623
  Receipt Date: 20250623
  Transmission Date: 20250717
  Serious: Yes (Hospitalization)
  Sender: NOVO NORDISK
  Company Number: US-NOVOPROD-1459733

PATIENT
  Age: 78 Year
  Sex: Male

DRUGS (1)
  1. TRESIBA [Suspect]
     Active Substance: INSULIN DEGLUDEC
     Indication: Diabetes mellitus
     Dosage: 12 IU, QD
     Route: 058
     Dates: start: 2024

REACTIONS (2)
  - Atrioventricular block [Recovered/Resolved]
  - Renal mass [Recovered/Resolved]

NARRATIVE: CASE EVENT DATE: 20250101
